FAERS Safety Report 19406604 (Version 1)
Quarter: 2021Q2

REPORT INFORMATION
  Report Type: Spontaneous
  Country: US (occurrence: US)
  Receive Date: 20210611
  Receipt Date: 20210611
  Transmission Date: 20210717
  Serious: Yes (Other)
  Sender: FDA-Public Use
  Company Number: US-SA-2021SA193230

PATIENT
  Age: 62 Year
  Sex: Female

DRUGS (13)
  1. OXYBUTYNIN. [Concomitant]
     Active Substance: OXYBUTYNIN CHLORIDE
  2. NEOSPORIN [NEOMYCIN SULFATE;POLYMYXIN B SULFATE] [Concomitant]
  3. AMOXICILLIN. [Concomitant]
     Active Substance: AMOXICILLIN
  4. PROMETHAZINE [Concomitant]
     Active Substance: PROMETHAZINE HYDROCHLORIDE
  5. VITAMIN D3 [Concomitant]
     Active Substance: CHOLECALCIFEROL
  6. HCTZ [Concomitant]
     Active Substance: HYDROCHLOROTHIAZIDE
  7. WELLBUTRIN [Concomitant]
     Active Substance: BUPROPION HYDROCHLORIDE
  8. MIRTAZAPINE. [Concomitant]
     Active Substance: MIRTAZAPINE
  9. BACTRIM [Concomitant]
     Active Substance: SULFAMETHOXAZOLE\TRIMETHOPRIM
  10. CERDELGA [Suspect]
     Active Substance: ELIGLUSTAT
     Dosage: 84 MG
     Route: 048
     Dates: start: 20210301
  11. OMEPRAZOLE. [Concomitant]
     Active Substance: OMEPRAZOLE
  12. SCOPOLAMINE [HYOSCINE] [Concomitant]
     Active Substance: SCOPOLAMINE
  13. LUTEIN [XANTOFYL] [Concomitant]

REACTIONS (1)
  - Brain neoplasm [Unknown]
